FAERS Safety Report 21367872 (Version 1)
Quarter: 2022Q3

REPORT INFORMATION
  Report Type: Spontaneous
  Country: US (occurrence: US)
  Receive Date: 20220923
  Receipt Date: 20220923
  Transmission Date: 20221027
  Serious: No
  Sender: FDA-Public Use
  Company Number: US-AMGEN-USASP2022162545

PATIENT
  Sex: Female

DRUGS (1)
  1. EVENITY [Suspect]
     Active Substance: ROMOSOZUMAB-AQQG
     Indication: Back disorder
     Dosage: UNK UNK, QMO
     Route: 058
     Dates: start: 2021, end: 20220914

REACTIONS (2)
  - Tooth disorder [Unknown]
  - Gingival disorder [Unknown]
